FAERS Safety Report 8336220-3 (Version None)
Quarter: 2012Q2

REPORT INFORMATION
  Report Type: 
  Country: None (occurrence: None)
  Receive Date: 20120501
  Receipt Date: 20120417
  Transmission Date: 20120825
  Serious: Yes (Hospitalization)
  Sender: FDA-Public Use
  Company Number: AXC-2012-000124

PATIENT
  Age: 11 Year

DRUGS (3)
  1. ULTRASE MT18 (PANCRELIPASE) CAPSULE, 18000USP [Suspect]
     Indication: PRODUCT USED FOR UNKNOWN INDICATION
     Dosage: 3 WITH MEALS; 2 WITH SNACK, UNKNOWN
     Dates: end: 20100101
  2. ANTIBIOTICS [Concomitant]
  3. ZENPEP [Suspect]
     Indication: PRODUCT USED FOR UNKNOWN INDICATION
     Dosage: 3 CAPSULES WITH MEAL, ORAL
     Route: 048
     Dates: start: 20100101, end: 20110627

REACTIONS (19)
  - POST-TUSSIVE VOMITING [None]
  - BONE PAIN [None]
  - PAIN [None]
  - BACK PAIN [None]
  - ABDOMINAL PAIN [None]
  - VOMITING [None]
  - DEHYDRATION [None]
  - STEATORRHOEA [None]
  - DISTAL ILEAL OBSTRUCTION SYNDROME [None]
  - WEIGHT DECREASED [None]
  - APPENDICITIS [None]
  - FLATULENCE [None]
  - DIARRHOEA [None]
  - FREQUENT BOWEL MOVEMENTS [None]
  - ABDOMINAL DISCOMFORT [None]
  - ABDOMINAL PAIN UPPER [None]
  - NAUSEA [None]
  - HEPATIC STEATOSIS [None]
  - HYPOPHAGIA [None]
